FAERS Safety Report 15543137 (Version 2)
Quarter: 2018Q4

REPORT INFORMATION
  Report Type: Report from Study
  Country: US (occurrence: US)
  Receive Date: 20181023
  Receipt Date: 20181204
  Transmission Date: 20190205
  Serious: Yes (Other)
  Sender: FDA-Public Use
  Company Number: US-TESARO, INC.-US-2018TSO04547

PATIENT
  Sex: Female

DRUGS (2)
  1. ZEJULA [Suspect]
     Active Substance: NIRAPARIB
     Indication: OVARIAN CANCER
     Dosage: 300 MG, UNK
     Route: 048
     Dates: start: 20180101, end: 20180410
  2. ZEJULA [Suspect]
     Active Substance: NIRAPARIB
     Dosage: 200 MG, HS
     Route: 048
     Dates: start: 20180424

REACTIONS (7)
  - Neuropathy peripheral [Not Recovered/Not Resolved]
  - Facial bones fracture [Unknown]
  - Fall [Unknown]
  - Balance disorder [Unknown]
  - Product dose omission [Unknown]
  - Carbohydrate antigen 125 increased [Unknown]
  - Abdominal distension [Not Recovered/Not Resolved]
